FAERS Safety Report 5765310-4 (Version None)
Quarter: 2008Q2

REPORT INFORMATION
  Report Type: 
  Country: None (occurrence: None)
  Receive Date: 20080609
  Receipt Date: 20080609
  Transmission Date: 20081010
  Serious: Yes (Other)
  Sender: FDA-Public Use
  Company Number: None

PATIENT
  Age: 99 Year
  Sex: Female
  Weight: 52.1637 kg

DRUGS (8)
  1. ZOSYN [Suspect]
     Indication: PNEUMONIA
     Dosage: 4.5 GRAMS Q 6 HOURS IV
     Route: 042
     Dates: start: 20080519, end: 20080524
  2. NEXIUM [Concomitant]
  3. PREVACID [Concomitant]
  4. LASIX [Concomitant]
  5. SYNTHROID [Concomitant]
  6. PHENYLEPHRINE [Concomitant]
  7. MORPHINE [Concomitant]
  8. REGULAR INSULIN [Concomitant]

REACTIONS (1)
  - PLATELET COUNT DECREASED [None]
